FAERS Safety Report 19670723 (Version 6)
Quarter: 2024Q2

REPORT INFORMATION
  Report Type: Report from Study
  Country: IT (occurrence: IT)
  Receive Date: 20210806
  Receipt Date: 20240620
  Transmission Date: 20240716
  Serious: Yes (Other)
  Sender: FDA-Public Use
  Company Number: IT-ROCHE-2816936

PATIENT
  Age: 62 Year
  Sex: Male

DRUGS (10)
  1. OBINUTUZUMAB [Suspect]
     Active Substance: OBINUTUZUMAB
     Indication: Follicular lymphoma
     Dosage: NUMBER OF CYCLES RECEIVED (AT STUDY ENTRY):3?INDUCTION PHASE: 1000 MILLIGRAM (MG) INTRAVENOUSLY (IV)
     Route: 042
  2. OBINUTUZUMAB [Suspect]
     Active Substance: OBINUTUZUMAB
     Route: 042
  3. OBINUTUZUMAB [Suspect]
     Active Substance: OBINUTUZUMAB
     Dosage: OBINUTUZUMAB LAST DOSE ADMINISTERED BEFORE PARESTHESIA AND ITCHING 10/12/2021?OBINUTUZUMAB LAST DOSE
     Route: 042
     Dates: end: 20211210
  4. OBINUTUZUMAB [Suspect]
     Active Substance: OBINUTUZUMAB
     Route: 042
  5. VINCRISTINE [Suspect]
     Active Substance: VINCRISTINE
     Indication: Product used for unknown indication
     Dosage: 28 DAYS BETWEEN C1 AND C2, FROM C2 TO C6 EVERY 21 DAYS.
     Route: 065
  6. DOXORUBICIN [Suspect]
     Active Substance: DOXORUBICIN
     Indication: Product used for unknown indication
     Dosage: 28 DAYS BETWEEN C1 AND C2, FROM C2 TO C6 EVERY 21 DAYS.
     Route: 065
  7. PREDNISONE [Suspect]
     Active Substance: PREDNISONE
     Indication: Product used for unknown indication
     Dosage: 28 DAYS BETWEEN C1 AND C2, FROM C2 TO C6 EVERY 21 DAYS.
     Route: 065
  8. PREDNISONE [Suspect]
     Active Substance: PREDNISONE
     Route: 065
     Dates: end: 20200808
  9. PREDNISONE [Suspect]
     Active Substance: PREDNISONE
     Route: 065
     Dates: end: 20200810
  10. CYCLOPHOSPHAMIDE [Suspect]
     Active Substance: CYCLOPHOSPHAMIDE
     Indication: Product used for unknown indication
     Dosage: 28 DAYS BETWEEN C1 AND C2, FROM C2 TO C6 EVERY 21 DAYS.
     Route: 065

REACTIONS (21)
  - Neutropenia [Recovered/Resolved]
  - Off label use [Unknown]
  - Neutropenia [Recovered/Resolved]
  - Off label use [Unknown]
  - Anaemia [Recovered/Resolved]
  - Blepharitis [Recovered/Resolved]
  - Pruritus [Recovering/Resolving]
  - Paraesthesia [Unknown]
  - Off label use [Unknown]
  - Conjunctivitis [Recovered/Resolved]
  - Influenza [Recovering/Resolving]
  - Tinnitus [Unknown]
  - Anal haemorrhage [Recovered/Resolved]
  - Diarrhoea [Recovering/Resolving]
  - Nausea [Recovered/Resolved]
  - Erectile dysfunction [Unknown]
  - Pruritus [Recovering/Resolving]
  - Dysuria [Recovered/Resolved]
  - Pruritus [Recovered/Resolved]
  - Cough [Recovering/Resolving]
  - Dysuria [Unknown]

NARRATIVE: CASE EVENT DATE: 20200524
